FAERS Safety Report 24933717 (Version 1)
Quarter: 2025Q1

REPORT INFORMATION
  Report Type: Report from Study
  Country: US (occurrence: US)
  Receive Date: 20250206
  Receipt Date: 20250206
  Transmission Date: 20250408
  Serious: Yes (Other)
  Sender: EXELIXIS
  Company Number: US-EXELIXIS-CABO-24073832

PATIENT
  Age: 68 Year
  Sex: Male
  Weight: 105.08 kg

DRUGS (1)
  1. CABOMETYX [Suspect]
     Active Substance: CABOZANTINIB S-MALATE
     Indication: Renal cancer
     Dosage: 20 MG, QD
     Route: 048
     Dates: start: 20230727, end: 202402

REACTIONS (1)
  - Malignant neoplasm progression [Unknown]

NARRATIVE: CASE EVENT DATE: 20240201
